FAERS Safety Report 7917528-X (Version None)
Quarter: 2011Q4

REPORT INFORMATION
  Report Type: 
  Country: None (occurrence: None)
  Receive Date: 20111116
  Receipt Date: 20111111
  Transmission Date: 20120403
  Serious: Yes (Hospitalization, Other)
  Sender: FDA-Public Use
  Company Number: JP-PFIZER INC-2011263173

PATIENT
  Age: 75 Year
  Sex: Male
  Weight: 46.5 kg

DRUGS (7)
  1. LANSOPRAZOLE [Suspect]
     Indication: GASTRIC ULCER
     Dosage: 15 MG, 1X/DAY
     Route: 048
     Dates: end: 20111020
  2. ALDACTONE [Suspect]
     Indication: CARDIAC FAILURE ACUTE
     Dosage: 25 MG, 1X/DAY
     Route: 048
     Dates: start: 20111004, end: 20111020
  3. WARFARIN SODIUM [Suspect]
     Indication: ACUTE MYOCARDIAL INFARCTION
     Dosage: 0.5 MG, 1X/DAY
     Route: 048
     Dates: start: 20111008, end: 20111016
  4. LIVALO [Suspect]
     Indication: DYSLIPIDAEMIA
     Dosage: 1 MG, 1X/DAY
     Route: 048
     Dates: start: 20111001, end: 20111020
  5. PLAVIX [Suspect]
     Indication: ACUTE MYOCARDIAL INFARCTION
     Dosage: 75 MG, 1X/DAY
     Route: 048
     Dates: start: 20110926, end: 20111024
  6. ENALAPRIL MALEATE [Suspect]
     Indication: CARDIAC FAILURE ACUTE
     Dosage: 5 MG, 1X/DAY
     Route: 048
     Dates: start: 20111004, end: 20111013
  7. WARFARIN SODIUM [Suspect]
     Indication: ACUTE MYOCARDIAL INFARCTION
     Dosage: 2 MG, 1X/DAY
     Route: 048
     Dates: start: 20111003, end: 20111021

REACTIONS (1)
  - INTERSTITIAL LUNG DISEASE [None]
